FAERS Safety Report 6522206-8 (Version None)
Quarter: 2009Q4

REPORT INFORMATION
  Report Type: 
  Country: None (occurrence: None)
  Receive Date: 20091229
  Receipt Date: 20091229
  Transmission Date: 20100525
  Serious: Yes (Life-Threatening)
  Sender: FDA-Public Use
  Company Number: None

PATIENT
  Age: 74 Year
  Sex: Female
  Weight: 78.9 kg

DRUGS (10)
  1. PERCOCET [Suspect]
     Indication: PAIN
     Dosage: 2 TABLETS Q 4 PRN
     Dates: start: 20091123, end: 20091125
  2. ENOXAPARIN SODIUM [Concomitant]
  3. ACETAZOLAMIDE [Concomitant]
  4. CEFEPIME [Concomitant]
  5. DOCUSATE [Concomitant]
  6. FOLIC ACID [Concomitant]
  7. FUROSEMIDE [Concomitant]
  8. M.V.I. [Concomitant]
  9. THIAMINE [Concomitant]
  10. TRIAMCINOLONE NASAL SPRAY [Concomitant]

REACTIONS (5)
  - FALL [None]
  - LOSS OF CONSCIOUSNESS [None]
  - OXYGEN SATURATION DECREASED [None]
  - RADIUS FRACTURE [None]
  - SOMNOLENCE [None]
